FAERS Safety Report 9277262 (Version 4)
Quarter: 2013Q2

REPORT INFORMATION
  Report Type: Spontaneous
  Country: US (occurrence: US)
  Receive Date: 20130508
  Receipt Date: 20130605
  Transmission Date: 20140414
  Serious: Yes (Death, Hospitalization, Other)
  Sender: FDA-Public Use
  Company Number: US-MERCK-1305USA002730

PATIENT
  Age: 63 Year
  Sex: Female

DRUGS (3)
  1. JANUVIA [Suspect]
     Indication: TYPE 2 DIABETES MELLITUS
     Dosage: UNK
     Route: 048
     Dates: start: 20071203, end: 201010
  2. JANUVIA [Suspect]
     Dosage: UNK
     Route: 048
     Dates: start: 201101, end: 201112
  3. JANUVIA [Suspect]
     Dosage: UNK
     Route: 048
     Dates: start: 201303, end: 20130417

REACTIONS (2)
  - Myocardial infarction [Fatal]
  - Headache [Not Recovered/Not Resolved]
